FAERS Safety Report 5170582-3 (Version None)
Quarter: 2006Q4

REPORT INFORMATION
  Report Type: 
  Country: None (occurrence: None)
  Receive Date: 20061205
  Receipt Date: 20061026
  Transmission Date: 20070319
  Serious: No
  Sender: FDA-Public Use
  Company Number: 36388

PATIENT
  Age: 69 Year
  Sex: Female

DRUGS (1)
  1. TRAVOPROST 0.004% SOLUTION [Suspect]
     Indication: GLAUCOMA
     Dosage: 1 GTT HS
     Route: 047
     Dates: start: 20060906, end: 20060907

REACTIONS (3)
  - ASTHMA [None]
  - CARDIAC DISORDER [None]
  - CHEST DISCOMFORT [None]
